FAERS Safety Report 19163630 (Version 1)
Quarter: 2021Q2

REPORT INFORMATION
  Report Type: Other
  Country: RU (occurrence: RU)
  Receive Date: 20210421
  Receipt Date: 20210421
  Transmission Date: 20210717
  Serious: Yes (Other)
  Sender: FDA-Public Use
  Company Number: RU-MACLEODS PHARMACEUTICALS US LTD-MAC2021030846

PATIENT

DRUGS (4)
  1. LAMIVUDINE. [Suspect]
     Active Substance: LAMIVUDINE
     Indication: HIV INFECTION
     Dosage: 300 MILLIGRAM, QD, ONE COURSE, PRIOR TO CONCEPTION, FIRST TRIMESTER
     Route: 048
     Dates: start: 20140620
  2. TIVICAY [Suspect]
     Active Substance: DOLUTEGRAVIR SODIUM
     Indication: HIV INFECTION
     Dosage: 50 MILLIGRAM, QD, ONE COURSE, PRIOR TO CONCEPTION, FIRST TRIMESTER
     Route: 048
     Dates: start: 20200804, end: 20210128
  3. DACLATASVIR. [Suspect]
     Active Substance: DACLATASVIR
     Indication: HIV INFECTION
     Dosage: 60 MILLIGRAM, PRIOR TO CONCEPTION, FIRST TRIMESTER
     Route: 065
  4. NARLAPREVIR [Suspect]
     Active Substance: NARLAPREVIR
     Indication: HIV INFECTION
     Dosage: 200 MILLIGRAM, PRIOR TO CONCEPTION, FIRST TRIMESTER
     Route: 065

REACTIONS (2)
  - Abortion induced [Unknown]
  - Maternal exposure during pregnancy [Unknown]

NARRATIVE: CASE EVENT DATE: 20210208
